FAERS Safety Report 15385140 (Version 1)
Quarter: 2018Q3

REPORT INFORMATION
  Report Type: Spontaneous
  Country: DE (occurrence: DE)
  Receive Date: 20180914
  Receipt Date: 20180914
  Transmission Date: 20181010
  Serious: Yes (Other)
  Sender: FDA-Public Use
  Company Number: PHHY2018DE092795

PATIENT
  Age: 23 Year
  Sex: Male

DRUGS (4)
  1. MYFORTIC [Suspect]
     Active Substance: MYCOPHENOLATE SODIUM
     Indication: RENAL TRANSPLANT
     Dosage: UNK
     Route: 065
     Dates: end: 201806
  2. CERTICAN [Suspect]
     Active Substance: EVEROLIMUS
     Indication: RENAL TRANSPLANT
     Dosage: 1 MG, BID
     Route: 065
  3. METHYLPREDNISOLONE. [Concomitant]
     Active Substance: METHYLPREDNISOLONE
     Indication: RENAL TRANSPLANT
     Dosage: 4 MG, QD
     Route: 065
  4. SANDIMMUN OPTORAL [Suspect]
     Active Substance: CYCLOSPORINE
     Indication: RENAL TRANSPLANT
     Dosage: 75 MG, BID (25 + 50 MG)
     Route: 065
     Dates: start: 20180524

REACTIONS (10)
  - Fatigue [Unknown]
  - Cytomegalovirus infection [Unknown]
  - Oedema peripheral [Recovering/Resolving]
  - Acne [Unknown]
  - Bone marrow oedema [Unknown]
  - BK virus infection [Unknown]
  - C-reactive protein increased [Unknown]
  - Bone pain [Unknown]
  - Stomatitis [Unknown]
  - Immunosuppressant drug level [Unknown]
